FAERS Safety Report 15395882 (Version 4)
Quarter: 2019Q3

REPORT INFORMATION
  Report Type: Report from Study
  Country: KR (occurrence: KR)
  Receive Date: 20180918
  Receipt Date: 20190701
  Transmission Date: 20191004
  Serious: Yes (Hospitalization)
  Sender: FDA-Public Use
  Company Number: KR-EISAI MEDICAL RESEARCH-EC-2018-045155

PATIENT
  Age: 64 Year
  Sex: Male
  Weight: 80 kg

DRUGS (10)
  1. LENVIMA [Suspect]
     Active Substance: LENVATINIB
     Indication: PRODUCT USED FOR UNKNOWN INDICATION
     Route: 048
     Dates: start: 20180521, end: 20180630
  2. GLUPA [Concomitant]
     Active Substance: METFORMIN HYDROCHLORIDE
  3. CANDEMORE [Concomitant]
  4. LENVIMA [Suspect]
     Active Substance: LENVATINIB
     Route: 048
     Dates: start: 2018, end: 20190401
  5. DICAMAX [Concomitant]
  6. JEIL ALMAX [Concomitant]
  7. CALCIO [Concomitant]
     Active Substance: CALCIUM
  8. SYNTHYROXINE [Concomitant]
     Active Substance: LEVOTHYROXINE SODIUM
  9. GALVUS [Concomitant]
     Active Substance: VILDAGLIPTIN
  10. LIPITOR [Concomitant]
     Active Substance: ATORVASTATIN CALCIUM

REACTIONS (2)
  - Hypocalcaemia [Recovered/Resolved]
  - Colitis [Recovered/Resolved]

NARRATIVE: CASE EVENT DATE: 20180611
